FAERS Safety Report 5871065-5 (Version None)
Quarter: 2008Q3

REPORT INFORMATION
  Report Type: 
  Country: None (occurrence: None)
  Receive Date: 20080904
  Receipt Date: 20080825
  Transmission Date: 20090109
  Serious: Yes (Death)
  Sender: FDA-Public Use
  Company Number: JP-ABBOTT-08P-087-0474175-00

PATIENT
  Age: 42 Year
  Sex: Female

DRUGS (5)
  1. LEUPROLIDE ACETATE [Suspect]
     Indication: BREAST CANCER
     Route: 058
     Dates: start: 20071116, end: 20071116
  2. FENTANYL-25 [Concomitant]
     Indication: CANCER PAIN
     Route: 062
     Dates: start: 20071116, end: 20080120
  3. VERAPAMIL HYDROCHLORIDE [Concomitant]
     Indication: CANCER PAIN
     Route: 054
     Dates: start: 20071116, end: 20080120
  4. PROCHLORPERAZINE [Concomitant]
     Indication: DRUG USE FOR UNKNOWN INDICATION
     Route: 048
     Dates: start: 20071116, end: 20080101
  5. METOCLOPRAMIDE [Concomitant]
     Indication: DRUG USE FOR UNKNOWN INDICATION
     Route: 048
     Dates: start: 20071116, end: 20080101

REACTIONS (1)
  - BREAST CANCER [None]
